FAERS Safety Report 11944102 (Version 1)
Quarter: 2016Q1

REPORT INFORMATION
  Report Type: Spontaneous
  Country: CA (occurrence: CA)
  Receive Date: 20160125
  Receipt Date: 20160125
  Transmission Date: 20160526
  Serious: Yes (Other)
  Sender: FDA-Public Use
  Company Number: CA-ROCHE-1699467

PATIENT
  Age: 74 Year
  Sex: Male

DRUGS (1)
  1. NAPROXEN. [Suspect]
     Active Substance: NAPROXEN
     Indication: PAIN
     Route: 048

REACTIONS (3)
  - Peripheral swelling [Recovered/Resolved]
  - Internal haemorrhage [Recovered/Resolved]
  - Walking disability [Recovered/Resolved]
